FAERS Safety Report 5376569-X (Version None)
Quarter: 2007Q2

REPORT INFORMATION
  Report Type: 
  Country: None (occurrence: None)
  Receive Date: 20070629
  Receipt Date: 20070608
  Transmission Date: 20071010
  Serious: Yes (Death, Other)
  Sender: FDA-Public Use
  Company Number: 2007JP001429

PATIENT
  Age: 49 Year
  Sex: Male

DRUGS (9)
  1. FUNGUARD(MICAFUNGIN INJECTION) [Suspect]
     Indication: BRONCHOPULMONARY ASPERGILLOSIS
     Dosage: 300 MG, D, IV DRIP
     Route: 041
     Dates: start: 20060125, end: 20060129
  2. DIFLUCAN [Concomitant]
  3. ACYCLOVIR [Concomitant]
  4. MINOCYCLINE HCL [Concomitant]
  5. MEROPEN (MEROPENEM) [Concomitant]
  6. UNASYN (SULBACTAM SODIUM) [Concomitant]
  7. NEUPOGEN [Concomitant]
  8. OMEPRAL [Concomitant]
  9. DECADRON [Concomitant]

REACTIONS (9)
  - ALANINE AMINOTRANSFERASE INCREASED [None]
  - ASPARTATE AMINOTRANSFERASE INCREASED [None]
  - BLOOD CREATININE INCREASED [None]
  - BLOOD UREA INCREASED [None]
  - JAUNDICE [None]
  - LIVER DISORDER [None]
  - MALIGNANT NEOPLASM PROGRESSION [None]
  - MULTIPLE MYELOMA [None]
  - RENAL DISORDER [None]
